FAERS Safety Report 11861815 (Version 1)
Quarter: 2015Q4

REPORT INFORMATION
  Report Type: Spontaneous
  Country: IT (occurrence: IT)
  Receive Date: 20151222
  Receipt Date: 20151222
  Transmission Date: 20160305
  Serious: Yes (Other)
  Sender: FDA-Public Use
  Company Number: IT-CELGENE-ITA-2015122474

PATIENT

DRUGS (2)
  1. ABRAXANE [Suspect]
     Active Substance: PACLITAXEL
     Route: 065
  2. ABRAXANE [Suspect]
     Active Substance: PACLITAXEL
     Indication: BREAST CANCER METASTATIC
     Route: 065

REACTIONS (12)
  - Peripheral sensory neuropathy [Unknown]
  - Leukopenia [Unknown]
  - Anaemia [Unknown]
  - Mucosal inflammation [Unknown]
  - Neutropenia [Unknown]
  - Myalgia [Unknown]
  - Infection [Unknown]
  - Breast cancer [Unknown]
  - Fatigue [Unknown]
  - Vomiting [Unknown]
  - Alopecia [Unknown]
  - Nausea [Unknown]
